FAERS Safety Report 8786586 (Version 1)
Quarter: 2012Q4

REPORT INFORMATION
  Report Type: Report from Study
  Country: US (occurrence: US)
  Receive Date: 20120914
  Receipt Date: 20120914
  Transmission Date: 20130627
  Serious: No
  Sender: FDA-Public Use
  Company Number: US-VERTEX PHARMACEUTICAL INC.-AE-2012-009925

PATIENT

DRUGS (8)
  1. INCIVEK [Suspect]
     Indication: HEPATITIS C
     Route: 048
  2. PEGASYS [Concomitant]
     Indication: HEPATITIS C
  3. RIBAVIRIN [Concomitant]
     Indication: HEPATITIS C
  4. MIRTAZAPINE [Concomitant]
  5. TRAMADOL HCL [Concomitant]
  6. SYMBICORT AER [Concomitant]
  7. ALBUTEROL NEB [Concomitant]
  8. PROCRIT [Concomitant]

REACTIONS (9)
  - Blood pressure increased [Unknown]
  - Eye swelling [Unknown]
  - Dry eye [Unknown]
  - Chills [Unknown]
  - Fatigue [Unknown]
  - Asthenia [Unknown]
  - Rash [Unknown]
  - Anaemia [Unknown]
  - Nausea [Unknown]
